FAERS Safety Report 9925376 (Version 1)
Quarter: 2014Q1

REPORT INFORMATION
  Report Type: Spontaneous
  Country: US (occurrence: US)
  Receive Date: 20140226
  Receipt Date: 20140226
  Transmission Date: 20141002
  Serious: Yes (Other)
  Sender: FDA-Public Use
  Company Number: US-PFIZER INC-2014051479

PATIENT
  Age: 39 Year
  Sex: Female

DRUGS (1)
  1. LEVOXYL [Suspect]
     Dosage: UNK
     Dates: start: 1992

REACTIONS (1)
  - Nervous system disorder [Unknown]
